FAERS Safety Report 4536752-X (Version None)
Quarter: 2004Q4

REPORT INFORMATION
  Report Type: 
  Country: None (occurrence: None)
  Receive Date: 20041223
  Receipt Date: 20041214
  Transmission Date: 20050328
  Serious: Yes (Hospitalization)
  Sender: FDA-Public Use
  Company Number: US-AMGEN-US103536

PATIENT
  Sex: Female
  Weight: 60 kg

DRUGS (1)
  1. PROCRIT [Suspect]
     Indication: RENAL FAILURE CHRONIC
     Route: 058
     Dates: start: 20041201

REACTIONS (4)
  - ANAEMIA [None]
  - MYALGIA [None]
  - NAUSEA [None]
  - PYREXIA [None]
